FAERS Safety Report 4706702-1 (Version None)
Quarter: 2005Q2

REPORT INFORMATION
  Report Type: 
  Country: None (occurrence: None)
  Receive Date: 20050629
  Receipt Date: 20050329
  Transmission Date: 20051028
  Serious: No
  Sender: FDA-Public Use
  Company Number: 05P-163-0295457-00

PATIENT
  Age: 65 Year
  Sex: Female
  Weight: 71.6683 kg

DRUGS (9)
  1. HUMIRA [Suspect]
     Indication: RHEUMATOID ARTHRITIS
     Dosage: 40 MG, 1 IN 2 WK, SUBCUTANEOUS
     Route: 058
     Dates: start: 20041201, end: 20041201
  2. CELECOXIB [Concomitant]
  3. LEVOTHYROXINE SODIUM [Concomitant]
  4. ATENOLOL [Concomitant]
  5. FOLIC ACID [Concomitant]
  6. METHOTREXATE [Concomitant]
  7. HYDROCHLOROTHIAZIDE [Concomitant]
  8. ACETAMINOPHEN W/ CODEINE [Concomitant]
  9. OXYCOCET [Concomitant]

REACTIONS (4)
  - ARTHRALGIA [None]
  - BLOOD PRESSURE INCREASED [None]
  - PNEUMONIA [None]
  - VERTIGO [None]
